FAERS Safety Report 25238530 (Version 2)
Quarter: 2025Q3

REPORT INFORMATION
  Report Type: Spontaneous
  Country: US (occurrence: US)
  Receive Date: 20250425
  Receipt Date: 20250816
  Transmission Date: 20251021
  Serious: No
  Sender: ALEXION PHARMACEUTICALS
  Company Number: US-AstraZeneca-CH-00855320AP

PATIENT
  Sex: Female

DRUGS (1)
  1. FASENRA [Suspect]
     Active Substance: BENRALIZUMAB
     Indication: Asthma

REACTIONS (5)
  - Asthma-chronic obstructive pulmonary disease overlap syndrome [Recovered/Resolved]
  - No adverse event [Unknown]
  - Headache [Unknown]
  - Pain [Unknown]
  - Inappropriate schedule of product administration [Unknown]
